FAERS Safety Report 8218754-5 (Version None)
Quarter: 2012Q1

REPORT INFORMATION
  Report Type: 
  Country: None (occurrence: None)
  Receive Date: 20120319
  Receipt Date: 20120313
  Transmission Date: 20120608
  Serious: Yes (Hospitalization)
  Sender: FDA-Public Use
  Company Number: PHHY2012JP022714

PATIENT

DRUGS (4)
  1. LOPRESSOR [Suspect]
     Indication: HYPERTENSION
     Dosage: UNK
     Route: 048
  2. LOPRESSOR [Suspect]
     Dosage: 20 DF, TABLETE ONCE
     Route: 048
  3. DIOVAN [Suspect]
     Dosage: 20 DF,TABLETS ONCE
     Route: 048
     Dates: start: 20120312
  4. DIOVAN [Suspect]
     Indication: HYPERTENSION
     Dosage: UNK
     Route: 048

REACTIONS (2)
  - SHOCK [None]
  - OVERDOSE [None]
